APPROVED DRUG PRODUCT: NISOLDIPINE
Active Ingredient: NISOLDIPINE
Strength: 8.5MG
Dosage Form/Route: TABLET, EXTENDED RELEASE;ORAL
Application: A091001 | Product #001 | TE Code: AB
Applicant: MYLAN PHARMACEUTICALS INC
Approved: Jan 26, 2011 | RLD: No | RS: No | Type: RX